FAERS Safety Report 15754907 (Version 3)
Quarter: 2019Q1

REPORT INFORMATION
  Report Type: Other
  Country: DE (occurrence: DE)
  Receive Date: 20181224
  Receipt Date: 20190305
  Transmission Date: 20190417
  Serious: Yes (Disabling, Other)
  Sender: FDA-Public Use
  Company Number: DE-ACCORD-097330

PATIENT
  Age: 47 Year
  Sex: Female

DRUGS (5)
  1. DOCETAXEL. [Suspect]
     Active Substance: DOCETAXEL
     Indication: BREAST CANCER
     Dosage: SIX CYCLES
     Route: 065
     Dates: start: 200812
  2. EPIRUBICIN [Suspect]
     Active Substance: EPIRUBICIN
     Indication: BREAST CANCER
     Dosage: SIX CYCLES
     Route: 065
     Dates: start: 200812
  3. TAMOXIFEN [Suspect]
     Active Substance: TAMOXIFEN
     Indication: BREAST CANCER
     Dosage: SIX CYCLES
     Route: 065
     Dates: start: 200812
  4. HYPERICUM PERFORATUM [Suspect]
     Active Substance: HYPERICUM PERFORATUM
     Indication: SLEEP DISORDER
     Route: 065
  5. SERTRALINE [Suspect]
     Active Substance: SERTRALINE HYDROCHLORIDE
     Indication: DEPRESSION
     Dosage: 75 MG/DL
     Route: 065

REACTIONS (18)
  - Arthropathy [Unknown]
  - Hyperhidrosis [Unknown]
  - Libido decreased [Unknown]
  - Insomnia [Unknown]
  - Condition aggravated [Unknown]
  - Memory impairment [Unknown]
  - Menopausal disorder [Unknown]
  - Disturbance in attention [Unknown]
  - Hot flush [Unknown]
  - Anxiety [Unknown]
  - Off label use [Unknown]
  - Polyneuropathy [Unknown]
  - Fatigue [Unknown]
  - Burning sensation [Unknown]
  - Vulvovaginal dryness [Unknown]
  - Cognitive disorder [Unknown]
  - Arthralgia [Unknown]
  - Sleep disorder [Unknown]
